FAERS Safety Report 8540612-7 (Version None)
Quarter: 2012Q3

REPORT INFORMATION
  Report Type: 
  Country: None (occurrence: None)
  Receive Date: 20120713
  Receipt Date: 20100531
  Transmission Date: 20120928
  Serious: Yes (Other)
  Sender: FDA-Public Use
  Company Number: 2009AP003642

PATIENT
  Age: 40 Year

DRUGS (5)
  1. VENLAFAXINE HCL [Concomitant]
  2. RISPERIDONE [Suspect]
     Dosage: 4 MG;QD
  3. DRUG USED IN DIABETES (DRUG USED IN DIABETES) [Concomitant]
  4. CITALOPRAM HYDROBROMIDE [Concomitant]
  5. LITHIUM CARBONATE [Concomitant]

REACTIONS (4)
  - METABOLIC SYNDROME [None]
  - DEPRESSIVE SYMPTOM [None]
  - EXTRAPYRAMIDAL DISORDER [None]
  - LIVER FUNCTION TEST ABNORMAL [None]
